FAERS Safety Report 6899740-4 (Version None)
Quarter: 2010Q3

REPORT INFORMATION
  Report Type: 
  Country: None (occurrence: None)
  Receive Date: 20100708
  Receipt Date: 20090910
  Transmission Date: 20110219
  Serious: Yes (Other)
  Sender: FDA-Public Use
  Company Number: 2009240856

PATIENT
  Sex: Male
  Weight: 90.7 kg

DRUGS (1)
  1. CHANTIX [Suspect]
     Indication: SMOKING CESSATION THERAPY
     Dosage: 2X/DAY
     Dates: start: 20090516, end: 20090601

REACTIONS (6)
  - ABDOMINAL DISCOMFORT [None]
  - AGITATION [None]
  - ANGER [None]
  - FEELING ABNORMAL [None]
  - IRRITABILITY [None]
  - PARANOIA [None]
